FAERS Safety Report 5039491-4 (Version None)
Quarter: 2006Q2

REPORT INFORMATION
  Report Type: 
  Country: None (occurrence: None)
  Receive Date: 20060629
  Receipt Date: 20060622
  Transmission Date: 20061013
  Serious: Yes (Hospitalization)
  Sender: FDA-Public Use
  Company Number: GB-BRISTOL-MYERS SQUIBB COMPANY-13420203

PATIENT
  Age: 63 Year
  Sex: Female
  Weight: 72 kg

DRUGS (8)
  1. PACLITAXEL [Suspect]
     Dates: start: 20060609, end: 20060609
  2. CYCLOPHOSPHAMIDE [Suspect]
     Dates: start: 20060519, end: 20060519
  3. EPIRUBICIN [Suspect]
     Dates: start: 20060519, end: 20060519
  4. ASPIRIN [Concomitant]
     Indication: INFARCTION
     Route: 048
     Dates: start: 20060423
  5. BENDROFLUAZIDE [Concomitant]
     Indication: HYPERTENSION
     Route: 048
     Dates: start: 20020101
  6. SIMVASTATIN [Concomitant]
     Indication: BLOOD CHOLESTEROL INCREASED
     Route: 048
     Dates: start: 20060424
  7. CITALOPRAM [Concomitant]
     Indication: DEPRESSION
     Route: 048
     Dates: start: 20060605
  8. BECOTIDE [Concomitant]
     Indication: ASTHMA
     Route: 048
     Dates: start: 19760101

REACTIONS (3)
  - CONFUSIONAL STATE [None]
  - DYSPHAGIA [None]
  - HEADACHE [None]
